FAERS Safety Report 11677925 (Version 1)
Quarter: 2015Q4

REPORT INFORMATION
  Report Type: Spontaneous
  Country: CZ (occurrence: CZ)
  Receive Date: 20151028
  Receipt Date: 20151028
  Transmission Date: 20160304
  Serious: Yes (Hospitalization)
  Sender: FDA-Public Use
  Company Number: CZ-JNJFOC-20151017171

PATIENT
  Age: 37 Year
  Sex: Male

DRUGS (3)
  1. PEGASYS [Concomitant]
     Active Substance: PEGINTERFERON ALFA-2A
     Indication: CHRONIC HEPATITIS C
     Route: 058
     Dates: start: 20150428
  2. OLYSIO [Suspect]
     Active Substance: SIMEPREVIR
     Indication: CHRONIC HEPATITIS C
     Route: 048
     Dates: start: 20150721, end: 20150804
  3. COPEGUS [Concomitant]
     Active Substance: RIBAVIRIN
     Indication: CHRONIC HEPATITIS C
     Route: 065
     Dates: start: 20150428

REACTIONS (1)
  - Appendicitis [Recovered/Resolved]

NARRATIVE: CASE EVENT DATE: 20150805
